FAERS Safety Report 15096286 (Version 3)
Quarter: 2019Q4

REPORT INFORMATION
  Report Type: Spontaneous
  Country: US (occurrence: US)
  Receive Date: 20180702
  Receipt Date: 20191007
  Transmission Date: 20200122
  Serious: No
  Sender: FDA-Public Use
  Company Number: US-PFIZER INC-2018262658

PATIENT
  Age: 66 Year
  Sex: Female
  Weight: 59.86 kg

DRUGS (1)
  1. IBRANCE [Suspect]
     Active Substance: PALBOCICLIB
     Indication: NEOPLASM PROGRESSION
     Dosage: 125 MG, CYCLIC (125 MG DAILY FOR 21 DAYS, 7 DAYS OFF)
     Dates: start: 201806

REACTIONS (1)
  - Oral disorder [Recovered/Resolved]

NARRATIVE: CASE EVENT DATE: 201806
